FAERS Safety Report 17218988 (Version 1)
Quarter: 2019Q4

REPORT INFORMATION
  Report Type: Spontaneous
  Country: PL (occurrence: PL)
  Receive Date: 20191231
  Receipt Date: 20191231
  Transmission Date: 20200122
  Serious: Yes (Other)
  Sender: FDA-Public Use
  Company Number: PL-MYLANLABS-2019M1132371

PATIENT
  Age: 34 Year
  Sex: Male

DRUGS (2)
  1. SIMVASTATIN. [Suspect]
     Active Substance: SIMVASTATIN
     Indication: XANTHOMATOSIS
     Dosage: TREATMENT WAS CONSIDERED A FAILURE..
     Route: 065
  2. CHENODEOXYCHOLIC ACID [Suspect]
     Active Substance: CHENODIOL
     Indication: XANTHOMATOSIS
     Dosage: TREATMENT WAS CONSIDERED A FAILURE..
     Route: 065

REACTIONS (1)
  - Treatment failure [Unknown]
